FAERS Safety Report 7656858-6 (Version None)
Quarter: 2011Q3

REPORT INFORMATION
  Report Type: 
  Country: None (occurrence: None)
  Receive Date: 20110801
  Receipt Date: 20110716
  Transmission Date: 20111222
  Serious: Yes (Other)
  Sender: FDA-Public Use
  Company Number: 2011AP001516

PATIENT
  Age: 12 Year
  Sex: Female

DRUGS (3)
  1. CLARITHROMYCIN [Suspect]
     Indication: BRONCHITIS
  2. PREDNISONE [Concomitant]
  3. AZATHIOPRINE [Concomitant]

REACTIONS (5)
  - DISEASE RECURRENCE [None]
  - NEPHROTIC SYNDROME [None]
  - RENAL INJURY [None]
  - DRUG INTERACTION [None]
  - RENAL FAILURE ACUTE [None]
